FAERS Safety Report 7272094-X (Version None)
Quarter: 2010Q4

REPORT INFORMATION
  Report Type: 
  Country: None (occurrence: None)
  Receive Date: 20101130
  Receipt Date: 20090728
  Transmission Date: 20110411
  Serious: Yes (Hospitalization)
  Sender: FDA-Public Use
  Company Number: 2008-178223-NL

PATIENT
  Age: 29 Year
  Sex: Female
  Weight: 72.1 kg

DRUGS (16)
  1. NUVARING [Suspect]
     Indication: CONTRACEPTION
     Dosage: 1 DF;QM;VAG
     Route: 067
     Dates: start: 20070619, end: 20070901
  2. LEVOTHYROXINE SODIUM [Concomitant]
  3. SYNTHROID [Concomitant]
  4. LEVOXYL [Concomitant]
  5. MOBIC [Concomitant]
  6. COMPAZINE [Concomitant]
  7. HYDROCODONE BITARTRATE [Concomitant]
  8. TOPAMAX [Concomitant]
  9. ORPHENADRINE CITRATE [Concomitant]
  10. ZOLOFT [Concomitant]
  11. METHYLPREDNISOLONE [Concomitant]
  12. RELPAX [Concomitant]
  13. PROCHLORPERAZINE [Concomitant]
  14. SERTRALINE HCL [Concomitant]
  15. CHANTX [Concomitant]
  16. PERCOCET [Concomitant]

REACTIONS (2)
  - DEEP VEIN THROMBOSIS [None]
  - DEPRESSION [None]
